FAERS Safety Report 6160268-0 (Version None)
Quarter: 2009Q2

REPORT INFORMATION
  Report Type: 
  Country: None (occurrence: None)
  Receive Date: 20090416
  Receipt Date: 20090416
  Transmission Date: 20091009
  Serious: Yes (Life-Threatening, Hospitalization, Disabling, Other)
  Sender: FDA-Public Use
  Company Number: None

PATIENT
  Age: 33 Year
  Sex: Male
  Weight: 86.1834 kg

DRUGS (1)
  1. ADDERALL 10 [Suspect]

REACTIONS (9)
  - DIZZINESS [None]
  - GAIT DISTURBANCE [None]
  - HYPERSENSITIVITY [None]
  - PARALYSIS [None]
  - PRODUCT QUALITY ISSUE [None]
  - PRODUCT SUBSTITUTION ISSUE [None]
  - THERAPEUTIC AGENT TOXICITY [None]
  - THINKING ABNORMAL [None]
  - VISION BLURRED [None]
